FAERS Safety Report 6985017-5 (Version None)
Quarter: 2010Q3

REPORT INFORMATION
  Report Type: 
  Country: None (occurrence: None)
  Receive Date: 20100915
  Receipt Date: 20100903
  Transmission Date: 20110219
  Serious: Yes (Other)
  Sender: FDA-Public Use
  Company Number: PHHY2010US49803

PATIENT
  Age: 37 Year
  Sex: Male

DRUGS (16)
  1. LEPONEX [Suspect]
     Indication: SCHIZOPHRENIA
     Dosage: UNK
     Dates: start: 20041201
  2. LEPONEX [Suspect]
     Dosage: 300 MG
     Dates: start: 20050201
  3. LEPONEX [Suspect]
     Dosage: 275 MG/DAY
  4. LEPONEX [Suspect]
     Dosage: 225 MG/DAY
     Dates: start: 20050801
  5. FLUOXETINE [Concomitant]
  6. CLONAZEPAM [Concomitant]
  7. DISULFIRAM [Concomitant]
  8. ESOMEPRAZOLE MAGNESIUM [Concomitant]
  9. CLOMIPRAMINE [Concomitant]
  10. HALOPERIDOL [Concomitant]
  11. BENZATROPINE [Concomitant]
  12. LANSOPRAZOLE [Concomitant]
  13. TRAZODONE HCL [Concomitant]
  14. ZOLPIDEM [Concomitant]
  15. DONEPEZIL HCL [Concomitant]
  16. ANTIBIOTICS [Concomitant]

REACTIONS (15)
  - ANTIPSYCHOTIC DRUG LEVEL INCREASED [None]
  - ARTHRALGIA [None]
  - BODY TEMPERATURE INCREASED [None]
  - CHILLS [None]
  - HEADACHE [None]
  - INFLUENZA LIKE ILLNESS [None]
  - LEUKOCYTOSIS [None]
  - MYALGIA [None]
  - MYOGLOBIN BLOOD INCREASED [None]
  - PAIN [None]
  - RHABDOMYOLYSIS [None]
  - SINOBRONCHITIS [None]
  - SINUS CONGESTION [None]
  - SINUS DISORDER [None]
  - UPPER RESPIRATORY TRACT INFECTION [None]
